FAERS Safety Report 20015461 (Version 1)
Quarter: 2021Q4

REPORT INFORMATION
  Report Type: Spontaneous
  Country: US (occurrence: None)
  Receive Date: 20211031
  Receipt Date: 20211031
  Transmission Date: 20220303
  Serious: Yes (Hospitalization)
  Sender: FDA-Public Use
  Company Number: None

PATIENT
  Age: 82 Year
  Sex: Female
  Weight: 53.55 kg

DRUGS (1)
  1. PROLIA [Suspect]
     Active Substance: DENOSUMAB
     Indication: Osteoporosis
     Dosage: OTHER FREQUENCY : INJC. EVERY 6 MO;?
     Route: 030
     Dates: end: 20210708

REACTIONS (5)
  - Osteonecrosis [None]
  - Jaw disorder [None]
  - Infection [None]
  - Infection [None]
  - Subcutaneous abscess [None]

NARRATIVE: CASE EVENT DATE: 20210609
